FAERS Safety Report 13366929 (Version 11)
Quarter: 2018Q3

REPORT INFORMATION
  Report Type: Report from Study
  Country: GB (occurrence: GB)
  Receive Date: 20170324
  Receipt Date: 20180907
  Transmission Date: 20181010
  Serious: Yes (Hospitalization)
  Sender: FDA-Public Use
  Company Number: GB-ROCHE-1909946

PATIENT
  Age: 63 Year
  Sex: Male
  Weight: 95.3 kg

DRUGS (34)
  1. VALSARTAN. [Concomitant]
     Active Substance: VALSARTAN
     Indication: HYPERTENSION
     Route: 048
     Dates: end: 20170103
  2. AMOXYCILLIN [Concomitant]
     Active Substance: AMOXICILLIN
     Indication: VIRAL INFECTION
     Route: 048
     Dates: start: 20160216, end: 20160322
  3. CANDESARTAN. [Concomitant]
     Active Substance: CANDESARTAN
     Indication: HYPERTENSION
     Route: 048
     Dates: start: 20170104, end: 20170124
  4. CANDESARTAN. [Concomitant]
     Active Substance: CANDESARTAN
     Route: 048
     Dates: start: 20170426, end: 20170517
  5. PREDNISOLONE. [Concomitant]
     Active Substance: PREDNISOLONE
     Route: 048
     Dates: start: 20170413, end: 20170416
  6. PREDNISOLONE. [Concomitant]
     Active Substance: PREDNISOLONE
     Route: 048
     Dates: start: 20170501, end: 20170507
  7. BEVACIZUMAB. [Suspect]
     Active Substance: BEVACIZUMAB
     Indication: RENAL CELL CARCINOMA
     Dosage: THE MOST RECENT DOSE OF BEVACIZUMAB 1425 MG PRIOR TO THE COLITIS WAS ON 05/JUL/2016?THE MOST RECENT
     Route: 042
     Dates: start: 20160210
  8. TIMODINE (UNITED KINGDOM) [Concomitant]
     Indication: HAEMORRHOIDS
     Route: 061
     Dates: start: 20160915, end: 201610
  9. ATEZOLIZUMAB. [Suspect]
     Active Substance: ATEZOLIZUMAB
     Indication: RENAL CELL CARCINOMA
     Dosage: THE MOST RECENT DOSE OF ATEZOLIZUMAB 1200 MG PRIOR TO THE COLITIS WAS ON 05/JUL/2016?THE MOST RECENT
     Route: 042
     Dates: start: 20160210
  10. ANUSOL (UNITED KINGDOM) [Concomitant]
     Indication: HAEMORRHOIDS
     Route: 061
     Dates: end: 20161012
  11. VALSARTAN. [Concomitant]
     Active Substance: VALSARTAN
     Route: 048
     Dates: start: 20170104, end: 20170124
  12. LEVOTHYROXINE. [Concomitant]
     Active Substance: LEVOTHYROXINE
     Indication: HYPOTHYROIDISM
     Route: 048
     Dates: start: 20160525, end: 20160615
  13. LOPERAMIDE [Concomitant]
     Active Substance: LOPERAMIDE
     Indication: DIARRHOEA
     Route: 048
     Dates: start: 20160601
  14. ATORVASTATIN [Concomitant]
     Active Substance: ATORVASTATIN
     Indication: HYPERCHOLESTEROLAEMIA
     Route: 048
  15. LOSATAN [Concomitant]
     Active Substance: LOSARTAN
     Indication: HYPERTENSION
     Route: 048
     Dates: start: 201612, end: 20170103
  16. LOSATAN [Concomitant]
     Active Substance: LOSARTAN
     Route: 048
     Dates: start: 20170104, end: 20170124
  17. BECONASE AQ [Concomitant]
     Active Substance: BECLOMETHASONE DIPROPIONATE MONOHYDRATE
     Route: 065
  18. PREDNISOLONE. [Concomitant]
     Active Substance: PREDNISOLONE
     Indication: PNEUMONITIS
     Route: 048
     Dates: start: 20170417, end: 20170423
  19. LEVOTHYROXINE. [Concomitant]
     Active Substance: LEVOTHYROXINE
     Route: 048
     Dates: start: 20160616, end: 20160727
  20. LEVOTHYROXINE. [Concomitant]
     Active Substance: LEVOTHYROXINE
     Route: 048
     Dates: start: 20160728, end: 20170510
  21. SYNALAR [Concomitant]
     Active Substance: FLUOCINOLONE ACETONIDE
     Dosage: APPLICATION
     Route: 065
  22. CANDESARTAN. [Concomitant]
     Active Substance: CANDESARTAN
     Route: 048
     Dates: start: 20170221, end: 20170320
  23. CANDESARTAN. [Concomitant]
     Active Substance: CANDESARTAN
     Route: 048
     Dates: start: 20170518
  24. PREDNISOLONE. [Concomitant]
     Active Substance: PREDNISOLONE
     Route: 048
     Dates: start: 20170410, end: 20170412
  25. PREDNISOLONE. [Concomitant]
     Active Substance: PREDNISOLONE
     Route: 048
     Dates: start: 20170424, end: 20170430
  26. PREDNISOLONE. [Concomitant]
     Active Substance: PREDNISOLONE
     Route: 048
     Dates: start: 20170522, end: 20170607
  27. DOMPERIDONE [Concomitant]
     Active Substance: DOMPERIDONE
     Route: 065
  28. RANITIDINE. [Concomitant]
     Active Substance: RANITIDINE
     Indication: PRURITUS
     Route: 048
     Dates: start: 20170207, end: 20170320
  29. PREDNISOLONE. [Concomitant]
     Active Substance: PREDNISOLONE
     Route: 048
     Dates: start: 20170522, end: 20170607
  30. PREDNISOLONE. [Concomitant]
     Active Substance: PREDNISOLONE
     Route: 048
     Dates: start: 20170608, end: 20170628
  31. PREDNISOLONE. [Concomitant]
     Active Substance: PREDNISOLONE
     Route: 048
     Dates: start: 20170629
  32. SALBUTAMOL [Concomitant]
     Active Substance: ALBUTEROL
  33. QVAR [Concomitant]
     Active Substance: BECLOMETHASONE DIPROPIONATE
     Route: 065
  34. CHLORPHENAMINE [Concomitant]
     Active Substance: CHLORPHENIRAMINE MALEATE
     Indication: PRURITUS
     Route: 048
     Dates: start: 20170207, end: 20170328

REACTIONS (3)
  - Sepsis [Recovered/Resolved]
  - Colitis [Recovered/Resolved]
  - Acute kidney injury [Recovered/Resolved]

NARRATIVE: CASE EVENT DATE: 20160615
